FAERS Safety Report 4408637-0 (Version None)
Quarter: 2004Q3

REPORT INFORMATION
  Report Type: 
  Country: None (occurrence: None)
  Receive Date: 20040723
  Receipt Date: 20040707
  Transmission Date: 20050211
  Serious: Yes (Hospitalization)
  Sender: FDA-Public Use
  Company Number: 8005373

PATIENT
  Age: 33 Year
  Sex: Male
  Weight: 75 kg

DRUGS (4)
  1. KEPPRA [Suspect]
     Indication: EPILEPSY
     Dosage: 2500 MG /D PO
     Route: 048
     Dates: start: 20010501, end: 20040205
  2. TRILEPTAL [Suspect]
     Indication: EPILEPSY
     Dosage: 600 MG 2/D PO
     Route: 048
     Dates: start: 20030101, end: 20040205
  3. TRILEPTAL [Suspect]
     Indication: EPILEPSY
     Dates: start: 20040221
  4. URBANYL [Concomitant]

REACTIONS (8)
  - CONDITION AGGRAVATED [None]
  - FOLATE DEFICIENCY [None]
  - GRAND MAL CONVULSION [None]
  - HYPOVITAMINOSIS [None]
  - MYOCLONUS [None]
  - PANCYTOPENIA [None]
  - PETIT MAL EPILEPSY [None]
  - VERTIGO [None]
